FAERS Safety Report 7463401-3 (Version None)
Quarter: 2011Q2

REPORT INFORMATION
  Report Type: 
  Country: None (occurrence: None)
  Receive Date: 20110506
  Receipt Date: 20110426
  Transmission Date: 20111010
  Serious: Yes (Hospitalization)
  Sender: FDA-Public Use
  Company Number: A0925683A

PATIENT
  Age: 63 Year
  Sex: Female
  Weight: 63 kg

DRUGS (2)
  1. MOZOBIL [Suspect]
     Indication: PROPHYLAXIS
     Route: 058
     Dates: start: 20110213, end: 20110214
  2. MELPHALAN HYDROCHLORIDE [Suspect]
     Dosage: 345MG SINGLE DOSE
     Route: 042
     Dates: start: 20110222

REACTIONS (5)
  - FEBRILE NEUTROPENIA [None]
  - VOMITING [None]
  - ORTHOSTATIC HYPOTENSION [None]
  - DEHYDRATION [None]
  - NAUSEA [None]
